FAERS Safety Report 4917803-7 (Version None)
Quarter: 2006Q1

REPORT INFORMATION
  Report Type: 
  Country: None (occurrence: None)
  Receive Date: 20060214
  Receipt Date: 20060131
  Transmission Date: 20060701
  Serious: Yes (Hospitalization)
  Sender: FDA-Public Use
  Company Number: 2006RR-01561

PATIENT
  Age: 29 Year
  Sex: Female
  Weight: 68.9 kg

DRUGS (5)
  1. FLUOXETINE [Suspect]
     Indication: POSTPARTUM DEPRESSION
     Dosage: 20 MG, ORAL
     Route: 048
     Dates: start: 20031114, end: 20051218
  2. SALBUTAMOL (SALBUTAMOL) [Concomitant]
  3. QVAR 40 [Concomitant]
  4. SEREVENT [Concomitant]
  5. DEPO-PROVERA [Concomitant]

REACTIONS (1)
  - CONVULSION [None]
